FAERS Safety Report 9752300 (Version 1)
Quarter: 2013Q4

REPORT INFORMATION
  Report Type: Spontaneous
  Country: GB (occurrence: None)
  Receive Date: 20131211
  Receipt Date: 20131211
  Transmission Date: 20140711
  Serious: Yes (Life-Threatening)
  Sender: FDA-Public Use
  Company Number: AUR-APL-2013-10103

PATIENT
  Sex: Male

DRUGS (7)
  1. CIPROFLOXACIN (CIPROFLOXACIN) [Suspect]
     Indication: PRODUCT USED FOR UNKNOWN INDICATION
     Route: 048
     Dates: end: 20131110
  2. SIMVASTATIN (SIMVASTATIN) [Suspect]
     Indication: PRODUCT USED FOR UNKNOWN INDICATION
     Route: 048
     Dates: end: 20131110
  3. CICLOSPORIN (CICLOSPORIN) [Suspect]
     Route: 048
     Dates: end: 20131112
  4. ACICLOVIR (ACICLOVIR) [Concomitant]
  5. IRBESARTAN (IRBESARTAN) [Concomitant]
  6. OMEPRAZOLE (OMEPRAZOLE) [Concomitant]
  7. POSACONAZOLE (POSACONAZOLE) [Concomitant]

REACTIONS (1)
  - Rhabdomyolysis [None]
